FAERS Safety Report 15599525 (Version 2)
Quarter: 2018Q4

REPORT INFORMATION
  Report Type: Spontaneous
  Country: CA (occurrence: CA)
  Receive Date: 20181108
  Receipt Date: 20181214
  Transmission Date: 20190205
  Serious: No
  Sender: FDA-Public Use
  Company Number: CA-PFIZER INC-2018099788

PATIENT
  Age: 61 Year
  Sex: Female

DRUGS (8)
  1. XELJANZ [Suspect]
     Active Substance: TOFACITINIB CITRATE
     Dosage: 5 MG, TWICE A DAY
     Route: 048
     Dates: start: 20180322
  2. DOMPERIDONE [Concomitant]
     Active Substance: DOMPERIDONE
     Dosage: 10 MG, (DAILY OR TWICE DAILY)
  3. PREDNISONE. [Concomitant]
     Active Substance: PREDNISONE
     Dosage: 2 MG, CYCLIC (EVERY 14 DAYS)
  4. XELJANZ [Suspect]
     Active Substance: TOFACITINIB CITRATE
     Indication: RHEUMATOID ARTHRITIS
     Dosage: 2.5 MG, UNK
     Route: 048
     Dates: start: 20180301, end: 20180322
  5. METHOTREXATE. [Concomitant]
     Active Substance: METHOTREXATE
     Indication: RHEUMATOID ARTHRITIS
     Dosage: 20 MG, WEEKLY
     Dates: start: 2010
  6. MELOXICAM. [Concomitant]
     Active Substance: MELOXICAM
     Dosage: 7.5 MG, 2X/DAY
  7. PREVACID [Concomitant]
     Active Substance: LANSOPRAZOLE
     Dosage: 30 MG, DAILY
  8. ARAVA [Concomitant]
     Active Substance: LEFLUNOMIDE
     Dosage: 20 MG, UNK
     Dates: start: 201710, end: 20180301

REACTIONS (31)
  - Trigger finger [Unknown]
  - Arthropathy [Unknown]
  - Malaise [Recovering/Resolving]
  - Nightmare [Unknown]
  - Diarrhoea [Recovered/Resolved]
  - Rhinorrhoea [Not Recovered/Not Resolved]
  - Skin disorder [Unknown]
  - Fluid retention [Unknown]
  - Feeling abnormal [Not Recovered/Not Resolved]
  - Pollakiuria [Unknown]
  - Fatigue [Unknown]
  - Synovitis [Unknown]
  - Oral herpes [Recovered/Resolved]
  - Contusion [Unknown]
  - Headache [Recovered/Resolved]
  - Gait disturbance [Unknown]
  - Wrong technique in product usage process [Unknown]
  - Dysuria [Not Recovered/Not Resolved]
  - Weight increased [Unknown]
  - Hypersomnia [Unknown]
  - Product dose omission [Unknown]
  - Drug effect incomplete [Not Recovered/Not Resolved]
  - Inflammation [Unknown]
  - Condition aggravated [Unknown]
  - Pain in extremity [Unknown]
  - Fatigue [Not Recovered/Not Resolved]
  - Benign breast neoplasm [Recovering/Resolving]
  - Blood pressure increased [Unknown]
  - Rash [Unknown]
  - Nausea [Unknown]
  - Abdominal distension [Not Recovered/Not Resolved]

NARRATIVE: CASE EVENT DATE: 201803
